FAERS Safety Report 5580506-2 (Version None)
Quarter: 2008Q1

REPORT INFORMATION
  Report Type: 
  Country: None (occurrence: None)
  Receive Date: 20080103
  Receipt Date: 20071227
  Transmission Date: 20080703
  Serious: Yes (Other)
  Sender: FDA-Public Use
  Company Number: US-ELI_LILLY_AND_COMPANY-US200712005133

PATIENT
  Age: 66 Year
  Sex: Male

DRUGS (8)
  1. HUMALOG [Suspect]
  2. HUMALOG [Suspect]
     Dosage: UNK, UNK
     Dates: start: 20071001
  3. METFORMIN [Concomitant]
     Dosage: 1000 MG, 2/D
  4. ASPIRIN [Concomitant]
     Dosage: 81 MG, DAILY (1/D)
  5. PRILOSEC [Concomitant]
     Dosage: UNK, DAILY (1/D)
  6. LISINOPRIL [Concomitant]
     Dosage: 10 MG, DAILY (1/D)
  7. WELLBUTRIN XL [Concomitant]
     Dosage: 300 MG, DAILY (1/D)
  8. ZETIA [Concomitant]
     Dosage: 10 MG, DAILY (1/D)

REACTIONS (1)
  - PROSTATE CANCER [None]
